FAERS Safety Report 6158487-2 (Version None)
Quarter: 2009Q2

REPORT INFORMATION
  Report Type: 
  Country: None (occurrence: None)
  Receive Date: 20090417
  Receipt Date: 20090406
  Transmission Date: 20091009
  Serious: Yes (Other)
  Sender: FDA-Public Use
  Company Number: BR-JNJFOC-20090304384

PATIENT
  Sex: Male

DRUGS (6)
  1. REMICADE [Suspect]
     Indication: PSORIATIC ARTHROPATHY
     Route: 042
  2. METHOTREXATE [Concomitant]
     Indication: PSORIATIC ARTHROPATHY
  3. NISULID [Concomitant]
     Dosage: TWICE DAILY
  4. DEFLAZACORT [Concomitant]
  5. AMYTRIL [Concomitant]
  6. AMYTRIL [Concomitant]

REACTIONS (3)
  - BACK PAIN [None]
  - LUNG CANCER METASTATIC [None]
  - PAIN [None]
